FAERS Safety Report 9026656 (Version 2)
Quarter: 2013Q1

REPORT INFORMATION
  Report Type: Spontaneous
  Country: DE (occurrence: None)
  Receive Date: 20121226
  Receipt Date: 20130212
  Transmission Date: 20140127
  Serious: Yes (Hospitalization)
  Sender: FDA-Public Use
  Company Number: AEDEU201200552

PATIENT
  Age: 80 Year
  Sex: Female
  Weight: 59 kg

DRUGS (4)
  1. GAMUNEX [Suspect]
     Indication: CHRONIC INFLAMMATORY DEMYELINATING POLYRADICULONEUROPATHY
     Dosage: ONCE IN 3 WEEKS
     Route: 042
     Dates: start: 201008
  2. ACCUPRO [Concomitant]
  3. BISOPROLOL [Concomitant]
  4. RAMIPRIL [Concomitant]

REACTIONS (10)
  - Urinary tract infection [None]
  - Renal failure [None]
  - Asthenia [None]
  - Malaise [None]
  - Gait disturbance [None]
  - Bacterial test positive [None]
  - Staphylococcus test positive [None]
  - Laboratory test interference [None]
  - Dehydration [None]
  - Drug intolerance [None]
